FAERS Safety Report 22364713 (Version 1)
Quarter: 2023Q2

REPORT INFORMATION
  Report Type: Spontaneous
  Country: US (occurrence: US)
  Receive Date: 20230525
  Receipt Date: 20230525
  Transmission Date: 20230722
  Serious: No
  Sender: FDA-Public Use
  Company Number: US-JNJFOC-20230544783

PATIENT
  Sex: Female
  Weight: 79.904 kg

DRUGS (3)
  1. INVEGA SUSTENNA [Suspect]
     Active Substance: PALIPERIDONE PALMITATE
     Indication: Hormone level abnormal
     Route: 030
  2. INVEGA SUSTENNA [Suspect]
     Active Substance: PALIPERIDONE PALMITATE
  3. INVEGA SUSTENNA [Suspect]
     Active Substance: PALIPERIDONE PALMITATE

REACTIONS (6)
  - Off label use [Unknown]
  - Thyroid disorder [Unknown]
  - Hormone level abnormal [Unknown]
  - Depression [Unknown]
  - Urinary tract disorder [Unknown]
  - Overdose [Unknown]
